FAERS Safety Report 17944474 (Version 1)
Quarter: 2020Q2

REPORT INFORMATION
  Report Type: Spontaneous
  Country: GB (occurrence: VN)
  Receive Date: 20200625
  Receipt Date: 20200625
  Transmission Date: 20200714
  Serious: Yes (Other)
  Sender: FDA-Public Use
  Company Number: VN-ASTELLAS-2020US021588

PATIENT
  Age: 58 Year
  Sex: Female

DRUGS (3)
  1. TARCEVA [Suspect]
     Active Substance: ERLOTINIB HYDROCHLORIDE
     Indication: LUNG CARCINOMA CELL TYPE UNSPECIFIED STAGE IV
     Dosage: UNK UNK, UNKNOWN FREQ.
     Route: 048
  2. TAGRIX (OSIMERTINIB) [Suspect]
     Active Substance: OSIMERTINIB
     Indication: LUNG CARCINOMA CELL TYPE UNSPECIFIED STAGE IV
     Dosage: 1 TABLET FOR FIRST 5 DAYS
     Route: 065
  3. TAGRIX (OSIMERTINIB) [Suspect]
     Active Substance: OSIMERTINIB
     Dosage: 2 TABLETS FROM DAY 6 TO NOW
     Route: 065

REACTIONS (8)
  - Arthralgia [Recovering/Resolving]
  - Facial pain [Unknown]
  - Burning sensation [Unknown]
  - Haemoptysis [Recovered/Resolved]
  - Pulmonary pain [Recovering/Resolving]
  - Gait disturbance [Recovering/Resolving]
  - Carcinoembryonic antigen increased [Recovering/Resolving]
  - Erythema [Unknown]

NARRATIVE: CASE EVENT DATE: 202003
